APPROVED DRUG PRODUCT: PROCAINAMIDE HYDROCHLORIDE
Active Ingredient: PROCAINAMIDE HYDROCHLORIDE
Strength: 250MG
Dosage Form/Route: TABLET, EXTENDED RELEASE;ORAL
Application: A089369 | Product #001
Applicant: ANI PHARMACEUTICALS INC
Approved: Aug 14, 1987 | RLD: No | RS: No | Type: DISCN